FAERS Safety Report 5330315-4 (Version None)
Quarter: 2007Q2

REPORT INFORMATION
  Report Type: 
  Country: None (occurrence: None)
  Receive Date: 20070521
  Receipt Date: 20070516
  Transmission Date: 20071010
  Serious: Yes (Hospitalization)
  Sender: FDA-Public Use
  Company Number: HQWYE244516MAY07

PATIENT
  Age: 77 Year
  Sex: Female

DRUGS (10)
  1. CORDARONE [Suspect]
     Indication: ATRIAL FIBRILLATION
     Route: 048
  2. CORDARONE [Suspect]
     Indication: ATRIAL FLUTTER
  3. NOLVADEX [Suspect]
     Indication: BREAST CANCER
     Route: 048
     Dates: start: 20070224
  4. LEPTICUR [Concomitant]
     Indication: DRUG USE FOR UNKNOWN INDICATION
     Route: 048
  5. NORFLOXACIN [Suspect]
     Indication: DRUG USE FOR UNKNOWN INDICATION
     Dosage: 400 MG TABLET; DAILY DOSE AND FREQUENCY NOT SPECIFIED
     Route: 048
     Dates: start: 20070223, end: 20070226
  6. MINISINTROM [Suspect]
     Indication: ATRIAL FIBRILLATION
     Route: 048
  7. MINISINTROM [Suspect]
     Indication: ATRIAL FLUTTER
  8. HEMIGOXINE NATIVELLE [Concomitant]
     Indication: DRUG USE FOR UNKNOWN INDICATION
     Route: 048
  9. ANAFRANIL [Suspect]
     Indication: PSYCHOTIC DISORDER
     Route: 048
  10. ORAP [Suspect]
     Indication: PSYCHOTIC DISORDER
     Route: 048

REACTIONS (5)
  - ERYTHEMA [None]
  - PETECHIAE [None]
  - RASH MACULO-PAPULAR [None]
  - SKIN EXFOLIATION [None]
  - TOXIC SKIN ERUPTION [None]
